FAERS Safety Report 7657680-7 (Version None)
Quarter: 2011Q3

REPORT INFORMATION
  Report Type: 
  Country: None (occurrence: None)
  Receive Date: 20110804
  Receipt Date: 20110726
  Transmission Date: 20111222
  Serious: Yes (Hospitalization, Other)
  Sender: FDA-Public Use
  Company Number: US-ASTRAZENECA-2011SE08970

PATIENT
  Age: 67 Year
  Sex: Female

DRUGS (2)
  1. SEROQUEL [Suspect]
     Indication: DEPRESSION
     Route: 048
  2. SEROQUEL [Suspect]
     Indication: INSOMNIA
     Route: 048

REACTIONS (10)
  - JOINT INJURY [None]
  - FOOT FRACTURE [None]
  - FALL [None]
  - SHOULDER OPERATION [None]
  - BACK DISORDER [None]
  - LIGAMENT SPRAIN [None]
  - SPINAL FRACTURE [None]
  - FOOT OPERATION [None]
  - WRIST SURGERY [None]
  - WEIGHT INCREASED [None]
